FAERS Safety Report 8271677-8 (Version None)
Quarter: 2012Q2

REPORT INFORMATION
  Report Type: 
  Country: None (occurrence: None)
  Receive Date: 20120410
  Receipt Date: 20120403
  Transmission Date: 20120825
  Serious: Yes (Hospitalization)
  Sender: FDA-Public Use
  Company Number: US-TEVA-331442USA

PATIENT
  Sex: Female
  Weight: 99.88 kg

DRUGS (18)
  1. BENAZEPRIL HYDROCHLORIDE [Concomitant]
     Indication: HYPERTENSION
  2. ONDANSETRON [Concomitant]
     Indication: NAUSEA
     Route: 048
  3. ZOLPIDEM TARTRATE [Concomitant]
     Indication: INSOMNIA
     Route: 048
  4. PREGABALIN [Concomitant]
     Indication: FIBROMYALGIA
     Route: 048
  5. MONTELUKAST [Concomitant]
     Indication: HYPERSENSITIVITY
     Route: 048
  6. CLONIDINE [Concomitant]
     Indication: BLOOD PRESSURE
  7. HYDROMORPHONE HYDROCHLORIDE [Concomitant]
  8. BUPROPION HCL [Concomitant]
     Indication: DEPRESSION
     Dosage: 100 MILLIGRAM;
     Route: 048
  9. ERGOCALCIFEROL [Concomitant]
     Route: 048
  10. PANCREATIN TRIPLE STRENGTH CAP [Concomitant]
     Indication: PANCREATIC ENZYMES
     Route: 048
  11. OXYCODONE HCL [Concomitant]
     Indication: CANCER PAIN
     Route: 048
     Dates: start: 20120301, end: 20120301
  12. FENTANYL CITRATE [Concomitant]
     Indication: CANCER PAIN
     Route: 061
     Dates: start: 20051001, end: 20120101
  13. OCTREOTIDE ACETATE [Concomitant]
     Indication: NEOPLASM MALIGNANT
  14. FENTORA [Suspect]
     Indication: CANCER PAIN
     Route: 002
     Dates: start: 20110307
  15. METHADONE HCL [Concomitant]
     Indication: CANCER PAIN
     Dosage: 10 MILLIGRAM;
     Route: 048
     Dates: start: 20120101
  16. ACETAMINOPHEN [Concomitant]
     Indication: PAIN
  17. FLUTICASONE PROPIONATE/SALMETEROL [Concomitant]
     Indication: ASTHMA
  18. METOPROLOL TARTRATE [Concomitant]
     Indication: HYPERTENSION
     Route: 048
     Dates: start: 20120402

REACTIONS (2)
  - OFF LABEL USE [None]
  - EPISTAXIS [None]
